FAERS Safety Report 22141688 (Version 1)
Quarter: 2023Q1

REPORT INFORMATION
  Report Type: Report from Study
  Country: US (occurrence: US)
  Receive Date: 20230327
  Receipt Date: 20230327
  Transmission Date: 20230418
  Serious: Yes (Other)
  Sender: FDA-Public Use
  Company Number: US-ARBOR PHARMACEUTICALS, LLC-US-2023ARB003054

PATIENT
  Age: 58 Year
  Sex: Female

DRUGS (16)
  1. GABAPENTIN ENACARBIL [Suspect]
     Active Substance: GABAPENTIN ENACARBIL
     Indication: Product used for unknown indication
     Dosage: 3200 MG, QD
     Route: 065
  2. GABAPENTIN ENACARBIL [Suspect]
     Active Substance: GABAPENTIN ENACARBIL
     Dosage: TAPERED OFF
     Route: 065
  3. LAMOTRIGINE [Suspect]
     Active Substance: LAMOTRIGINE
     Indication: Affective disorder
     Dosage: 300 MG, NIGHTLY (DAILY)
  4. LAMOTRIGINE [Suspect]
     Active Substance: LAMOTRIGINE
     Dosage: 325 MG, DAILY
  5. LAMOTRIGINE [Suspect]
     Active Substance: LAMOTRIGINE
     Dosage: WEANED OFF COMPLETELY
  6. LAMOTRIGINE [Suspect]
     Active Substance: LAMOTRIGINE
     Dosage: 75 MG, QD
  7. LAMOTRIGINE [Suspect]
     Active Substance: LAMOTRIGINE
     Dosage: 35 MG, QD
  8. BUPROPION [Suspect]
     Active Substance: BUPROPION
     Indication: Affective disorder
     Dosage: UNK
  9. BUPROPION [Suspect]
     Active Substance: BUPROPION
     Dosage: 450 MG, QD
     Route: 065
  10. BUPROPION [Suspect]
     Active Substance: BUPROPION
     Dosage: TAPERED OFF
  11. DULOXETINE [Suspect]
     Active Substance: DULOXETINE
     Indication: Affective disorder
     Dosage: UNK
  12. DULOXETINE [Suspect]
     Active Substance: DULOXETINE
     Dosage: 120 MG, QD
     Route: 065
  13. DULOXETINE [Suspect]
     Active Substance: DULOXETINE
     Dosage: TAPERED OFF
  14. TRAZODONE [Suspect]
     Active Substance: TRAZODONE HYDROCHLORIDE
     Indication: Product used for unknown indication
     Dosage: 50 MG AT BEDTIME
  15. LITHIUM [Concomitant]
     Active Substance: LITHIUM
     Indication: Affective disorder
     Dosage: UNK
  16. VILAZODONE [Concomitant]
     Active Substance: VILAZODONE
     Indication: Affective disorder
     Dosage: UNK

REACTIONS (1)
  - Chorea [Recovering/Resolving]
